FAERS Safety Report 18951478 (Version 9)
Quarter: 2023Q4

REPORT INFORMATION
  Report Type: Other
  Country: US (occurrence: None)
  Receive Date: 20210301
  Receipt Date: 20231110
  Transmission Date: 20240109
  Serious: Yes (Other)
  Sender: FDA-Public Use
  Company Number: US-ROCHE-2729329

PATIENT
  Age: 77 Year
  Sex: Male

DRUGS (11)
  1. ALECENSA [Suspect]
     Active Substance: ALECTINIB HYDROCHLORIDE
     Indication: Lung neoplasm malignant
     Dosage: TAKE 4 CAPSULES BY MOUTH TWICE A DAY
     Route: 048
     Dates: start: 202012
  2. ALECENSA [Suspect]
     Active Substance: ALECTINIB HYDROCHLORIDE
     Indication: Sudden visual loss
  3. ALECENSA [Suspect]
     Active Substance: ALECTINIB HYDROCHLORIDE
     Indication: Non-small cell lung cancer metastatic
  4. ZYLOPRIM [Concomitant]
     Active Substance: ALLOPURINOL
     Route: 048
  5. BAYER ASPIRIN [Concomitant]
     Active Substance: ASPIRIN
     Dosage: TAKE 162 MG MOUTH DAILY
     Route: 048
  6. NEORAL [Concomitant]
     Active Substance: CYCLOSPORINE
     Dosage: 4 CAPSULES BY MOUTH
     Route: 048
  7. FOLVITE [Concomitant]
     Active Substance: FOLIC ACID
     Dosage: 400 MCG, IN THE EVENING
     Route: 048
  8. TOPROL XL [Concomitant]
     Active Substance: METOPROLOL SUCCINATE
     Route: 048
  9. PRILOSEC [Concomitant]
     Active Substance: OMEPRAZOLE MAGNESIUM
     Route: 048
  10. CRESTOR [Concomitant]
     Active Substance: ROSUVASTATIN CALCIUM
     Route: 048
  11. CELLCEPT [Concomitant]
     Active Substance: MYCOPHENOLATE MOFETIL
     Route: 048

REACTIONS (3)
  - Blindness [Not Recovered/Not Resolved]
  - Lung neoplasm [Unknown]
  - Skin cancer [Unknown]
